FAERS Safety Report 6287880-2 (Version None)
Quarter: 2009Q3

REPORT INFORMATION
  Report Type: 
  Country: None (occurrence: None)
  Receive Date: 20090729
  Receipt Date: 20090721
  Transmission Date: 20100115
  Serious: Yes (Hospitalization)
  Sender: FDA-Public Use
  Company Number: CN-JNJFOC-20090607793

PATIENT
  Age: 2 Year
  Sex: Male

DRUGS (2)
  1. INFANTS TYLENOL [Suspect]
  2. INFANTS TYLENOL [Suspect]
     Indication: PYREXIA

REACTIONS (1)
  - HAEMATURIA [None]
